FAERS Safety Report 5762935-7 (Version None)
Quarter: 2008Q2

REPORT INFORMATION
  Report Type: 
  Country: None (occurrence: None)
  Receive Date: 20080609
  Receipt Date: 20080528
  Transmission Date: 20081010
  Serious: Yes (Hospitalization)
  Sender: FDA-Public Use
  Company Number: DE-ROCHE-524556

PATIENT
  Sex: Male
  Weight: 61 kg

DRUGS (2)
  1. CAPECITABINE [Suspect]
     Indication: RECTAL CANCER
     Route: 048
     Dates: end: 20070916
  2. CAPECITABINE [Suspect]
     Route: 048
     Dates: start: 20071207, end: 20071212

REACTIONS (5)
  - ABDOMINAL PAIN UPPER [None]
  - DEHYDRATION [None]
  - DIABETES MELLITUS INADEQUATE CONTROL [None]
  - MEMORY IMPAIRMENT [None]
  - PERSONALITY CHANGE [None]
